FAERS Safety Report 6901647-0 (Version None)
Quarter: 2010Q3

REPORT INFORMATION
  Report Type: 
  Country: None (occurrence: None)
  Receive Date: 20100803
  Receipt Date: 20080412
  Transmission Date: 20110219
  Serious: Yes (Other)
  Sender: FDA-Public Use
  Company Number: US-PFIZER INC-2008019556

PATIENT
  Sex: Female
  Weight: 63.5 kg

DRUGS (1)
  1. LYRICA [Suspect]
     Dates: start: 20071107

REACTIONS (2)
  - CARDIAC DISORDER [None]
  - JOINT SWELLING [None]
